FAERS Safety Report 19358951 (Version 1)
Quarter: 2021Q2

REPORT INFORMATION
  Report Type: Spontaneous
  Country: GB (occurrence: GB)
  Receive Date: 20210601
  Receipt Date: 20210601
  Transmission Date: 20210717
  Serious: Yes (Hospitalization, Other)
  Sender: FDA-Public Use
  Company Number: GB-ACCORD-226743

PATIENT
  Age: 44 Year
  Sex: Male

DRUGS (2)
  1. CLOZAPINE. [Suspect]
     Active Substance: CLOZAPINE
     Indication: SCHIZOPHRENIA
     Dosage: 12.5MG ONCE A DAY, WITH DAILY?UP TITRATION BY 25MG FROM DAY 3
  2. PALIPERIDONE/PALIPERIDONE PALMITATE [Interacting]
     Active Substance: PALIPERIDONE
     Indication: SCHIZOPHRENIA
     Dosage: PALIPERIDONE LONG ACTING INJECTION?LAI MONTHLY INJECTIONS

REACTIONS (4)
  - Drug interaction [Unknown]
  - Injury [Recovering/Resolving]
  - Neuroleptic malignant syndrome [Recovering/Resolving]
  - Musculoskeletal injury [Recovering/Resolving]
